FAERS Safety Report 15334517 (Version 2)
Quarter: 2018Q4

REPORT INFORMATION
  Report Type: Spontaneous
  Country: NO (occurrence: NO)
  Receive Date: 20180830
  Receipt Date: 20181101
  Transmission Date: 20190204
  Serious: Yes (Other)
  Sender: FDA-Public Use
  Company Number: NO-PFIZER INC-2018345603

PATIENT
  Age: 57 Year
  Sex: Male

DRUGS (5)
  1. PREDNISOLON [PREDNISOLONE] [Concomitant]
     Dosage: 10 MG, 1X/DAY
  2. XELJANZ [Suspect]
     Active Substance: TOFACITINIB CITRATE
     Indication: ARTHRITIS
     Dosage: 5 MG, 2X/DAY
     Dates: start: 20180720, end: 201808
  3. SOMAC [Concomitant]
     Active Substance: PANTOPRAZOLE SODIUM
     Dosage: 20 MG, 1X/DAY
  4. ADALAT [Concomitant]
     Active Substance: NIFEDIPINE
     Dosage: 20 MG, 1X/DAY
  5. BRONKYL [Concomitant]
     Dosage: 200 MG, 3X/DAY

REACTIONS (4)
  - White blood cell count increased [Not Recovered/Not Resolved]
  - Rectal haemorrhage [Recovering/Resolving]
  - Gingival bleeding [Recovered/Resolved with Sequelae]
  - Mouth ulceration [Recovered/Resolved with Sequelae]

NARRATIVE: CASE EVENT DATE: 201808
